FAERS Safety Report 6611718-4 (Version None)
Quarter: 2010Q1

REPORT INFORMATION
  Report Type: 
  Country: None (occurrence: None)
  Receive Date: 20100303
  Receipt Date: 20100223
  Transmission Date: 20100710
  Serious: Yes (Other)
  Sender: FDA-Public Use
  Company Number: JP-JNJFOC-20100300163

PATIENT
  Age: 9 Decade
  Sex: Male

DRUGS (2)
  1. CRAVIT [Suspect]
     Indication: CYSTITIS
     Route: 048
  2. ANTIDIABETIC DRUG [Suspect]
     Indication: DRUG USE FOR UNKNOWN INDICATION
     Route: 065

REACTIONS (2)
  - HYPERINSULINAEMIA [None]
  - HYPOGLYCAEMIA [None]
